FAERS Safety Report 12936319 (Version 1)
Quarter: 2016Q4

REPORT INFORMATION
  Report Type: Spontaneous
  Country: US (occurrence: US)
  Receive Date: 20161114
  Receipt Date: 20161114
  Transmission Date: 20170207
  Serious: No
  Sender: FDA-Public Use
  Company Number: None

PATIENT
  Sex: Female

DRUGS (1)
  1. TRILEPTAL [Suspect]
     Active Substance: OXCARBAZEPINE
     Indication: BIPOLAR DISORDER
     Dosage: TRILEPTAL/OXCABAZEPINE - 2400 MGS - 4 TABLETS 600 MG EACH - ONCE PER DAY - AT BEDTIME -
     Dates: start: 20110601, end: 20160725

REACTIONS (1)
  - Toxicity to various agents [None]
